FAERS Safety Report 5733735-9 (Version None)
Quarter: 2008Q2

REPORT INFORMATION
  Report Type: 
  Country: None (occurrence: None)
  Receive Date: 20080509
  Receipt Date: 20080428
  Transmission Date: 20081010
  Serious: Yes (Other)
  Sender: FDA-Public Use
  Company Number: BR-PFIZER INC-2007081203

PATIENT
  Sex: Female
  Weight: 96 kg

DRUGS (8)
  1. CHANTIX [Suspect]
     Indication: TOBACCO USER
     Route: 048
  2. CHANTIX [Suspect]
     Indication: SMOKING CESSATION THERAPY
  3. PURAN T4 [Concomitant]
     Route: 048
  4. DEPAKENE [Concomitant]
     Route: 048
  5. CLONAZEPAM [Concomitant]
     Route: 048
  6. PAROXETINE HCL [Concomitant]
     Route: 048
  7. VALIUM [Concomitant]
     Route: 048
  8. RISPERIDONE [Concomitant]
     Route: 048

REACTIONS (4)
  - ANXIETY [None]
  - EAR DISCOMFORT [None]
  - PAIN [None]
  - WEIGHT DECREASED [None]
